FAERS Safety Report 4472776-9 (Version None)
Quarter: 2004Q4

REPORT INFORMATION
  Report Type: 
  Country: None (occurrence: None)
  Receive Date: 20041013
  Receipt Date: 20041008
  Transmission Date: 20050328
  Serious: Yes (Life-Threatening, Hospitalization, Disabling)
  Sender: FDA-Public Use
  Company Number: PHBS2004MX13500

PATIENT
  Age: 2 Year
  Sex: Female

DRUGS (4)
  1. SIMULECT [Suspect]
     Indication: LIVER TRANSPLANT
     Dosage: 20 MG/D
     Route: 042
     Dates: start: 20040929
  2. METHYLPREDNISOLONE [Concomitant]
     Indication: LIVER TRANSPLANT
     Dosage: 60 MG/D
     Route: 042
     Dates: start: 20040929
  3. HEPARIN [Concomitant]
     Route: 042
     Dates: start: 20041001
  4. TACROLIMUS [Concomitant]
     Dosage: 2 MG/D
     Route: 048
     Dates: start: 20040929

REACTIONS (7)
  - APNOEA [None]
  - CEREBRAL INFARCTION [None]
  - DEPRESSED LEVEL OF CONSCIOUSNESS [None]
  - HEMIPLEGIA [None]
  - HEPATIC ARTERY THROMBOSIS [None]
  - PUPILS UNEQUAL [None]
  - RESPIRATORY DISORDER [None]
